FAERS Safety Report 7582349-7 (Version None)
Quarter: 2011Q2

REPORT INFORMATION
  Report Type: 
  Country: None (occurrence: None)
  Receive Date: 20110623
  Receipt Date: 20110610
  Transmission Date: 20111010
  Serious: Yes (Other)
  Sender: FDA-Public Use
  Company Number: JP-2011-10706

PATIENT
  Age: 78 Year
  Sex: Male

DRUGS (3)
  1. ASPIRIN [Concomitant]
  2. PLETAL [Suspect]
     Indication: THROMBOSIS PROPHYLAXIS
     Dosage: , ORAL
     Route: 048
  3. TICLOPIDINE HCL [Concomitant]

REACTIONS (1)
  - FAT EMBOLISM [None]
